FAERS Safety Report 9297881 (Version 2)
Quarter: 2013Q3

REPORT INFORMATION
  Report Type: Spontaneous
  Country: US (occurrence: US)
  Receive Date: 20130520
  Receipt Date: 20130813
  Transmission Date: 20140515
  Serious: Yes (Other)
  Sender: FDA-Public Use
  Company Number: US-JNJFOC-20130505698

PATIENT
  Sex: Female
  Weight: 76.2 kg

DRUGS (4)
  1. XARELTO [Suspect]
     Indication: COAGULOPATHY
     Dosage: APPROXIMATELY ON 03-MAR-2013
     Route: 048
     Dates: start: 201303
  2. NEXIUM [Concomitant]
     Indication: GASTROOESOPHAGEAL REFLUX DISEASE
     Dosage: BEEN ON SINCE HAD ULCER
     Route: 048
     Dates: start: 201112
  3. BUSPIRONE [Concomitant]
     Indication: ANXIETY
     Route: 065
     Dates: start: 201201
  4. VITAMIN D3 [Concomitant]
     Indication: NUTRITIONAL SUPPLEMENTATION
     Route: 065
     Dates: start: 201201

REACTIONS (3)
  - Heart rate increased [Recovered/Resolved]
  - Epistaxis [Recovered/Resolved]
  - Feeling hot [Recovered/Resolved]
